FAERS Safety Report 6864247-7 (Version None)
Quarter: 2010Q3

REPORT INFORMATION
  Report Type: 
  Country: None (occurrence: None)
  Receive Date: 20100721
  Receipt Date: 20100714
  Transmission Date: 20110219
  Serious: Yes (Death)
  Sender: FDA-Public Use
  Company Number: JP-MERCK-1007USA01906

PATIENT
  Age: 72 Year
  Sex: Male

DRUGS (1)
  1. PEPCID [Suspect]
     Route: 065
     Dates: start: 20080201, end: 20080201

REACTIONS (2)
  - MULTI-ORGAN FAILURE [None]
  - TOXIC EPIDERMAL NECROLYSIS [None]
